FAERS Safety Report 4879472-4 (Version None)
Quarter: 2005Q4

REPORT INFORMATION
  Report Type: 
  Country: None (occurrence: None)
  Receive Date: 20051209
  Receipt Date: 20050930
  Transmission Date: 20060501
  Serious: Yes (Death)
  Sender: FDA-Public Use
  Company Number: USA-2005-0021384

PATIENT
  Age: 41 Year
  Sex: Female
  Weight: 88.9 kg

DRUGS (5)
  1. OXYCODONE HCL [Suspect]
     Route: 065
  2. DIPHENHYDRAMINE HCL [Suspect]
     Route: 065
  3. CITALOPRAM (CITALOPRAM) [Suspect]
     Route: 065
  4. PROMETHAZINE [Suspect]
     Route: 065
  5. QUETIAPINE FUMARATE [Suspect]
     Route: 065

REACTIONS (1)
  - MULTIPLE DRUG OVERDOSE ACCIDENTAL [None]
